FAERS Safety Report 18329341 (Version 1)
Quarter: 2020Q3

REPORT INFORMATION
  Report Type: Spontaneous
  Country: US (occurrence: US)
  Receive Date: 20200930
  Receipt Date: 20200930
  Transmission Date: 20201103
  Serious: Yes (Disabling)
  Sender: FDA-Public Use
  Company Number: None

PATIENT
  Age: 57 Year
  Sex: Female
  Weight: 72 kg

DRUGS (7)
  1. PROLIA [Suspect]
     Active Substance: DENOSUMAB
     Indication: OSTEOPOROSIS
     Dosage: ?          QUANTITY:1 INJECTION(S);OTHER FREQUENCY:6 MONTHS;?
     Route: 058
  2. GABAPENTIN. [Concomitant]
     Active Substance: GABAPENTIN
  3. POTASSIUM [Concomitant]
     Active Substance: POTASSIUM
  4. LUTEIN [Concomitant]
     Active Substance: LUTEIN
  5. ANASTROZOLE. [Concomitant]
     Active Substance: ANASTROZOLE
  6. MAGNESIUM [Concomitant]
     Active Substance: MAGNESIUM
  7. VITAMIN D [Concomitant]
     Active Substance: VITAMIN D NOS

REACTIONS (12)
  - Abdominal pain upper [None]
  - Influenza like illness [None]
  - Gait disturbance [None]
  - Asthenia [None]
  - Dysstasia [None]
  - Insomnia [None]
  - Tooth fracture [None]
  - Dyspepsia [None]
  - Migraine [None]
  - Pain in jaw [None]
  - Constipation [None]
  - Pain in extremity [None]

NARRATIVE: CASE EVENT DATE: 20200904
